FAERS Safety Report 8933957 (Version 2)
Quarter: 2013Q1

REPORT INFORMATION
  Report Type: Spontaneous
  Country: US (occurrence: US)
  Receive Date: 20121129
  Receipt Date: 20130213
  Transmission Date: 20140127
  Serious: Yes (Hospitalization)
  Sender: FDA-Public Use
  Company Number: US-GILEAD-2012-0065275

PATIENT
  Age: 75 None
  Sex: Female

DRUGS (1)
  1. LETAIRIS [Suspect]
     Indication: PULMONARY FIBROSIS
     Dosage: 10 MG, UNK
     Route: 048
     Dates: start: 20120809

REACTIONS (3)
  - Pneumonia [Not Recovered/Not Resolved]
  - Cardiac failure congestive [Unknown]
  - Asthenia [Not Recovered/Not Resolved]
